FAERS Safety Report 19003931 (Version 1)
Quarter: 2021Q1

REPORT INFORMATION
  Report Type: Spontaneous
  Country: US (occurrence: US)
  Receive Date: 20210312
  Receipt Date: 20210312
  Transmission Date: 20210420
  Serious: No
  Sender: FDA-Public Use
  Company Number: US-SMITH AND NEPHEW, INC-2020SMT00008

PATIENT
  Sex: Female

DRUGS (4)
  1. COLLAGENASE SANTYL [Suspect]
     Active Substance: COLLAGENASE CLOSTRIDIUM HISTOLYTICUM
     Indication: DECUBITUS ULCER
     Dosage: ^NOT A LOT,^ 2X/DAY
     Route: 061
     Dates: start: 202001, end: 2020
  2. MEDIHONEY [Suspect]
     Active Substance: HONEY
     Indication: DECUBITUS ULCER
     Route: 061
  3. COLLAGENASE SANTYL [Suspect]
     Active Substance: COLLAGENASE CLOSTRIDIUM HISTOLYTICUM
     Dosage: ^NOT A LOT,^ 1X/DAY
     Route: 061
     Dates: start: 2020, end: 202002
  4. UNSPECIFIED ANTIBIOTIC [Concomitant]
     Active Substance: UNSPECIFIED INGREDIENT

REACTIONS (4)
  - Application site pain [Unknown]
  - Wound complication [Not Recovered/Not Resolved]
  - Wound haemorrhage [Unknown]
  - Crying [Unknown]

NARRATIVE: CASE EVENT DATE: 2020
